FAERS Safety Report 5273521-X (Version None)
Quarter: 2007Q1

REPORT INFORMATION
  Report Type: 
  Country: None (occurrence: None)
  Receive Date: 20070321
  Receipt Date: 20070321
  Transmission Date: 20070707
  Serious: Yes (Hospitalization)
  Sender: FDA-Public Use
  Company Number: None

PATIENT
  Sex: Male

DRUGS (1)
  1. METOPROLOL SUCCINATE [Suspect]
     Indication: CARDIAC FAILURE CONGESTIVE
     Dosage: 50MG EVERY MORNING BY MOUTH
     Route: 048
     Dates: start: 20061019

REACTIONS (2)
  - ANAPHYLACTIC REACTION [None]
  - CARDIAC MURMUR [None]
